FAERS Safety Report 23512997 (Version 1)
Quarter: 2024Q1

REPORT INFORMATION
  Report Type: Spontaneous
  Country: US (occurrence: US)
  Receive Date: 20240212
  Receipt Date: 20240212
  Transmission Date: 20240410
  Serious: No
  Sender: FDA-Public Use
  Company Number: US-ARCUTIS BIOTHERAPEUTICS INC-2023AER000213

PATIENT

DRUGS (1)
  1. ZORYVE [Suspect]
     Active Substance: ROFLUMILAST
     Indication: Pruritus
     Dosage: ONCE DAILY OR EVERY OTHER DAY AS DIRECTED
     Route: 061

REACTIONS (2)
  - Application site erythema [Not Recovered/Not Resolved]
  - Off label use [Unknown]
